FAERS Safety Report 7294259-3 (Version None)
Quarter: 2011Q1

REPORT INFORMATION
  Report Type: 
  Country: None (occurrence: None)
  Receive Date: 20110215
  Receipt Date: 20110208
  Transmission Date: 20110831
  Serious: Yes (Other)
  Sender: FDA-Public Use
  Company Number: AU-JNJCH-2011003705

PATIENT
  Age: 22 Year
  Sex: Female

DRUGS (1)
  1. SUDAFED NASAL DECONGESTANT [Suspect]
     Indication: PRODUCT USED FOR UNKNOWN INDICATION
     Dosage: TEXT:UNKNOWN
     Route: 045

REACTIONS (2)
  - DEPENDENCE [None]
  - INSOMNIA [None]
